FAERS Safety Report 6667314-6 (Version None)
Quarter: 2010Q2

REPORT INFORMATION
  Report Type: 
  Country: None (occurrence: None)
  Receive Date: 20100405
  Receipt Date: 20100323
  Transmission Date: 20101027
  Serious: Yes (Death, Life-Threatening, Hospitalization)
  Sender: FDA-Public Use
  Company Number: JP-PFIZER INC-2009314840

PATIENT
  Age: 92 Year
  Sex: Female
  Weight: 46.2 kg

DRUGS (5)
  1. CELECOXIB [Suspect]
     Indication: PAIN
     Dosage: 100 MG, 2X/DAY
     Route: 048
     Dates: start: 20091017, end: 20091223
  2. ALENDRONATE SODIUM [Concomitant]
     Dosage: UNK
     Route: 048
     Dates: start: 20090928, end: 20091223
  3. SELBEX [Concomitant]
     Indication: PROPHYLAXIS
     Dosage: UNK
     Dates: start: 20090928, end: 20091223
  4. EPADEL [Concomitant]
     Dosage: UNK
     Dates: start: 20090103, end: 20091223
  5. OPALMON [Concomitant]
     Indication: PROPHYLAXIS
     Dosage: UNK
     Dates: start: 20090103, end: 20091223

REACTIONS (2)
  - ATRIAL FIBRILLATION [None]
  - EMBOLIC STROKE [None]
